FAERS Safety Report 24041482 (Version 3)
Quarter: 2024Q3

REPORT INFORMATION
  Report Type: Spontaneous
  Country: US (occurrence: US)
  Receive Date: 20240702
  Receipt Date: 20240808
  Transmission Date: 20241017
  Serious: Yes (Other)
  Sender: PFIZER
  Company Number: US-PFIZER INC-PV202400085133

PATIENT
  Age: 65 Year
  Sex: Male

DRUGS (1)
  1. INLYTA [Suspect]
     Active Substance: AXITINIB
     Dosage: 5 MG

REACTIONS (13)
  - Spinal operation [Unknown]
  - Rash [Unknown]
  - Sensitive skin [Unknown]
  - Oral mucosal roughening [Unknown]
  - Oral pain [Unknown]
  - Therapeutic response unexpected [Unknown]
  - Increased appetite [Unknown]
  - Hypertension [Unknown]
  - Weight decreased [Unknown]
  - Stomatitis [Unknown]
  - Dry mouth [Unknown]
  - Back pain [Not Recovered/Not Resolved]
  - Weight increased [Unknown]
